FAERS Safety Report 7552769-5 (Version None)
Quarter: 2011Q2

REPORT INFORMATION
  Report Type: 
  Country: None (occurrence: None)
  Receive Date: 20110616
  Receipt Date: 20110614
  Transmission Date: 20111010
  Serious: Yes (Hospitalization)
  Sender: FDA-Public Use
  Company Number: US-PFIZER INC-2011131070

PATIENT
  Sex: Female
  Weight: 55 kg

DRUGS (15)
  1. PROTONIX [Suspect]
     Indication: ULCER
     Dosage: 40 MG, DAILY
     Route: 048
  2. PROTONIX [Suspect]
     Indication: GASTROOESOPHAGEAL REFLUX DISEASE
  3. ZOFRAN [Concomitant]
     Indication: NAUSEA
     Dosage: 8 MG, UNK
  4. CYCLOBENZAPRINE [Concomitant]
     Indication: ARTHRALGIA
  5. CYCLOBENZAPRINE [Concomitant]
     Indication: BACK PAIN
     Dosage: 10 MG, UNK
  6. MAXALT [Concomitant]
     Indication: MIGRAINE
     Dosage: UNK
  7. HYDROCODONE [Concomitant]
     Indication: BACK PAIN
     Dosage: UNK
  8. PROMETHAZINE [Concomitant]
     Indication: VOMITING
     Dosage: UNK
  9. ALPRAZOLAM [Concomitant]
     Indication: NERVE INJURY
     Dosage: 0.5 MG, UNK
  10. HYDROCODONE [Concomitant]
     Indication: ARTHRALGIA
  11. LYRICA [Concomitant]
     Indication: NERVE INJURY
     Dosage: UNK
  12. LIDODERM [Concomitant]
     Indication: BACK PAIN
     Dosage: UNK
  13. LIDODERM [Concomitant]
     Indication: ARTHRALGIA
  14. CELEXA [Concomitant]
     Indication: DEPRESSION
     Dosage: 40 MG, UNK
  15. ESTRACE [Concomitant]
     Indication: HORMONE REPLACEMENT THERAPY
     Dosage: 1 MG, UNK

REACTIONS (1)
  - GALLBLADDER DISORDER [None]
